FAERS Safety Report 11337318 (Version 1)
Quarter: 2015Q3

REPORT INFORMATION
  Report Type: Spontaneous
  Country: US (occurrence: US)
  Receive Date: 20150803
  Receipt Date: 20150803
  Transmission Date: 20151125
  Serious: Yes (Other)
  Sender: FDA-Public Use
  Company Number: US-ELI_LILLY_AND_COMPANY-US200608000480

PATIENT
  Age: 56 Year
  Sex: Male
  Weight: 74.83 kg

DRUGS (8)
  1. ZYPREXA [Suspect]
     Active Substance: OLANZAPINE
     Dosage: 15 MG, UNK
     Dates: start: 20001206, end: 20010123
  2. GABAPENTIN. [Concomitant]
     Active Substance: GABAPENTIN
     Dosage: 300 MG, 4/D
     Dates: start: 20010521
  3. CARBAMAZEPINE. [Concomitant]
     Active Substance: CARBAMAZEPINE
     Dosage: 100 MG, 3/D
     Dates: start: 19980619, end: 19980921
  4. CARBAMAZEPINE. [Concomitant]
     Active Substance: CARBAMAZEPINE
     Dosage: 200 MG, 3/D
     Dates: start: 19980922, end: 20001206
  5. ZYPREXA [Suspect]
     Active Substance: OLANZAPINE
     Dosage: 10 MG, UNK
     Dates: start: 19980619, end: 20001206
  6. ZYPREXA [Suspect]
     Active Substance: OLANZAPINE
     Dosage: 45 MG, UNK
     Dates: start: 20010123, end: 20020124
  7. CARBAMAZEPINE. [Concomitant]
     Active Substance: CARBAMAZEPINE
     Dosage: 200 MG, 2/D
     Dates: start: 20001206, end: 2002
  8. FOSINOPRIL [Concomitant]
     Active Substance: FOSINOPRIL
     Indication: HYPERTENSION

REACTIONS (5)
  - Pancreatitis [Not Recovered/Not Resolved]
  - Type 2 diabetes mellitus [Unknown]
  - Hepatomegaly [Unknown]
  - Hepatic enzyme increased [Recovered/Resolved]
  - Prescribed overdose [Recovered/Resolved]

NARRATIVE: CASE EVENT DATE: 2000
